FAERS Safety Report 18706544 (Version 1)
Quarter: 2021Q1

REPORT INFORMATION
  Report Type: Spontaneous
  Country: US (occurrence: US)
  Receive Date: 20210106
  Receipt Date: 20210106
  Transmission Date: 20210419
  Serious: Yes (Hospitalization)
  Sender: FDA-Public Use
  Company Number: US-FRESENIUS KABI-FK202014093

PATIENT
  Age: 53 Year
  Sex: Male
  Weight: 89.67 kg

DRUGS (38)
  1. BISOPROLOL [Concomitant]
     Active Substance: BISOPROLOL
     Indication: ATRIAL FIBRILLATION
  2. BUPROPION HYDROCHLORIDE. [Concomitant]
     Active Substance: BUPROPION HYDROCHLORIDE
     Indication: DEPRESSION
  3. MORPHINE [Concomitant]
     Active Substance: MORPHINE
     Route: 042
     Dates: start: 20201207, end: 20201207
  4. ONDANSETRON [Concomitant]
     Active Substance: ONDANSETRON
     Indication: NAUSEA
     Route: 042
     Dates: start: 20201206, end: 20201206
  5. PARACETAMOL [Concomitant]
     Active Substance: ACETAMINOPHEN
     Indication: PAIN
     Route: 048
     Dates: start: 20201206, end: 20201206
  6. PROCHLORPERAZINE. [Concomitant]
     Active Substance: PROCHLORPERAZINE
     Indication: PROPHYLAXIS OF NAUSEA AND VOMITING
     Route: 048
     Dates: start: 20201208, end: 20201208
  7. FENTANYL. [Concomitant]
     Active Substance: FENTANYL
     Indication: PAIN
     Route: 042
     Dates: start: 20201210, end: 20201210
  8. CYCLOPHOSPHAMIDE. [Suspect]
     Active Substance: CYCLOPHOSPHAMIDE
     Route: 065
     Dates: start: 202005
  9. NO DRUG NAME [Suspect]
     Active Substance: UNSPECIFIED INGREDIENT
     Indication: B-CELL LYMPHOMA
     Dosage: JCAR017 (AUTOLOGOUS CD4+/CD8+ T CELLS EXPRESSING CD19 CAR) (INJECTION FOR INFUSION) (1 X 10^8 CAR +
     Route: 042
     Dates: start: 20201215, end: 20201215
  10. PANTOPRAZOLE [Concomitant]
     Active Substance: PANTOPRAZOLE
     Indication: GASTROOESOPHAGEAL REFLUX DISEASE
     Dosage: ONGOING
     Route: 048
     Dates: start: 2008
  11. DIPHENHYDRAMINE HYDROCHLORIDE. [Concomitant]
     Active Substance: DIPHENHYDRAMINE HYDROCHLORIDE
     Indication: PREMEDICATION
     Route: 042
     Dates: start: 20201215, end: 20201215
  12. MELATONIN [Concomitant]
     Active Substance: MELATONIN
     Dosage: ONGOING
     Route: 048
     Dates: start: 20201209
  13. FLUDARABINE [Suspect]
     Active Substance: FLUDARABINE PHOSPHATE
     Indication: B-CELL LYMPHOMA
     Route: 042
     Dates: start: 20201208, end: 20201210
  14. DILTIAZEM HYDROCHLORIDE. [Concomitant]
     Active Substance: DILTIAZEM HYDROCHLORIDE
     Indication: HYPERTENSION
     Dosage: ONGOING
     Route: 048
     Dates: start: 202004
  15. METFORMIN [Concomitant]
     Active Substance: METFORMIN HYDROCHLORIDE
     Indication: DIABETES MELLITUS
     Route: 048
     Dates: start: 2015, end: 20201215
  16. GUAIFENESIN. [Concomitant]
     Active Substance: GUAIFENESIN
     Indication: COUGH
     Route: 048
     Dates: start: 20201209, end: 20201211
  17. CYCLOPHOSPHAMIDE. [Suspect]
     Active Substance: CYCLOPHOSPHAMIDE
     Indication: B-CELL LYMPHOMA
     Route: 042
     Dates: start: 20201208, end: 20201210
  18. BUPROPION HYDROCHLORIDE. [Concomitant]
     Active Substance: BUPROPION HYDROCHLORIDE
     Indication: ANXIETY
     Dosage: ONGOING ?WELLBUTRIN XL (BUPROPION HYDROCHLORIDE)
     Route: 048
     Dates: start: 201411
  19. FLUCONAZOLE. [Concomitant]
     Active Substance: FLUCONAZOLE
     Indication: ANTIFUNGAL PROPHYLAXIS
     Dosage: ONGOING
     Route: 048
     Dates: start: 202004
  20. MELATONIN [Concomitant]
     Active Substance: MELATONIN
     Indication: INSOMNIA
     Route: 048
     Dates: start: 2010, end: 20201209
  21. SULFAMETHOXAZOLE/TRIMETHOPRIM [Concomitant]
     Active Substance: SULFAMETHOXAZOLE\TRIMETHOPRIM
     Indication: INFECTION PROPHYLAXIS
     Dosage: ONGOING
     Route: 048
     Dates: start: 20201207
  22. OXYCODONE [Concomitant]
     Active Substance: OXYCODONE
     Indication: PAIN
     Route: 048
     Dates: start: 20201207
  23. FUROSEMIDE. [Concomitant]
     Active Substance: FUROSEMIDE
     Indication: PERICARDIAL EFFUSION
     Route: 042
     Dates: start: 20201209, end: 20201209
  24. ONDANSETRON [Concomitant]
     Active Substance: ONDANSETRON
     Indication: PREMEDICATION
     Route: 048
     Dates: start: 20201208, end: 20201210
  25. OXYCODONE [Concomitant]
     Active Substance: OXYCODONE
     Route: 048
     Dates: start: 20201207
  26. FOSAPREPITANT [Concomitant]
     Active Substance: FOSAPREPITANT
     Indication: PREMEDICATION
     Route: 042
     Dates: start: 20201208, end: 20201208
  27. INSULIN LISPRO [Concomitant]
     Active Substance: INSULIN LISPRO
     Indication: DIABETES MELLITUS
     Dosage: INSULIN LISPRO?LOW DOSE (INSULIN LISPRO)?0?6 UNITS
     Route: 058
     Dates: start: 20201208, end: 20201211
  28. TOLVAPTAN [Concomitant]
     Active Substance: TOLVAPTAN
     Indication: HYPONATRAEMIA
     Route: 048
     Dates: start: 20201210, end: 20201210
  29. ACICLOVIR [Concomitant]
     Active Substance: ACYCLOVIR
     Indication: ANTIVIRAL PROPHYLAXIS
     Route: 048
  30. ALLOPURINOL. [Concomitant]
     Active Substance: ALLOPURINOL
     Indication: PROPHYLAXIS
     Route: 048
  31. OXYCODONE [Concomitant]
     Active Substance: OXYCODONE
     Route: 048
     Dates: start: 20201208, end: 20201208
  32. OXYCODONE [Concomitant]
     Active Substance: OXYCODONE
     Dosage: ONGOING
     Route: 048
     Dates: start: 20201222
  33. APIXABAN [Concomitant]
     Active Substance: APIXABAN
     Indication: THROMBOSIS PROPHYLAXIS
     Route: 048
     Dates: start: 202006, end: 20201218
  34. BISOPROLOL [Concomitant]
     Active Substance: BISOPROLOL
     Indication: HYPERTENSION
     Dosage: ONGOING
     Route: 048
     Dates: start: 202004
  35. FLUOXETINE [Concomitant]
     Active Substance: FLUOXETINE HYDROCHLORIDE
     Indication: ANXIETY
     Dosage: ONGOING
     Route: 048
     Dates: start: 201411
  36. VITAMINS NOS [Concomitant]
     Active Substance: VITAMINS
     Indication: SUPPLEMENTATION THERAPY
     Route: 048
     Dates: start: 2010, end: 20201215
  37. MORPHINE [Concomitant]
     Active Substance: MORPHINE
     Indication: NON-CARDIAC CHEST PAIN
     Route: 042
     Dates: start: 20201206, end: 20201206
  38. PARACETAMOL [Concomitant]
     Active Substance: ACETAMINOPHEN
     Indication: PREMEDICATION
     Route: 048
     Dates: start: 20201215, end: 20201215

REACTIONS (2)
  - Atrial flutter [Recovered/Resolved]
  - Pulmonary embolism [Recovered/Resolved]

NARRATIVE: CASE EVENT DATE: 20201215
